FAERS Safety Report 5324858-7 (Version None)
Quarter: 2007Q2

REPORT INFORMATION
  Report Type: 
  Country: None (occurrence: None)
  Receive Date: 20070515
  Receipt Date: 20070503
  Transmission Date: 20071010
  Serious: Yes (Death)
  Sender: FDA-Public Use
  Company Number: MX-ELI_LILLY_AND_COMPANY-MX200705001773

PATIENT
  Age: 28 Year
  Sex: Male

DRUGS (2)
  1. XIGRIS [Suspect]
     Indication: SEPSIS
     Dosage: UNK, UNKNOWN
     Route: 042
     Dates: start: 20070302, end: 20070301
  2. ANTIBIOTICS [Concomitant]

REACTIONS (1)
  - CEREBRAL HAEMORRHAGE [None]
